FAERS Safety Report 5131048-X (Version None)
Quarter: 2006Q3

REPORT INFORMATION
  Report Type: 
  Country: None (occurrence: None)
  Receive Date: 20060829
  Receipt Date: 20051104
  Transmission Date: 20061208
  Serious: Yes (Hospitalization)
  Sender: FDA-Public Use
  Company Number: CIP05002590

PATIENT
  Age: 22 Year
  Sex: Male
  Weight: 62.1 kg

DRUGS (1)
  1. ASACOL [Suspect]
     Indication: COLITIS ULCERATIVE
     Dosage: 2400 MG DAILY, ORAL
     Route: 048

REACTIONS (2)
  - COLITIS ULCERATIVE [None]
  - CONDITION AGGRAVATED [None]
